FAERS Safety Report 5601968-8 (Version None)
Quarter: 2008Q1

REPORT INFORMATION
  Report Type: 
  Country: None (occurrence: None)
  Receive Date: 20080122
  Receipt Date: 20080114
  Transmission Date: 20080703
  Serious: Yes (Other)
  Sender: FDA-Public Use
  Company Number: US-GDP-07403339

PATIENT
  Age: 31 Year
  Sex: Female
  Weight: 58.9676 kg

DRUGS (3)
  1. MINOCYCLINE HCL [Suspect]
     Indication: ACNE
     Dosage: 90 MG QD; ORAL
     Route: 048
     Dates: start: 20071001
  2. DIFFERIN [Suspect]
     Indication: ACNE
     Dosage: 0.3 % QD; TOPICAL
     Route: 061
     Dates: start: 20071001
  3. ORAL CONTRACEPTIVE NOS [Suspect]

REACTIONS (3)
  - ABORTION SPONTANEOUS [None]
  - DRUG EXPOSURE DURING PREGNANCY [None]
  - PREGNANCY [None]
